FAERS Safety Report 4581034-3 (Version None)
Quarter: 2005Q1

REPORT INFORMATION
  Report Type: 
  Country: None (occurrence: None)
  Receive Date: 20050214
  Receipt Date: 20040721
  Transmission Date: 20050727
  Serious: No
  Sender: FDA-Public Use
  Company Number: US-GLAXOSMITHKLINE-A0519219A

PATIENT
  Age: 65 Year
  Sex: Male

DRUGS (5)
  1. LAMICTAL [Suspect]
     Indication: DEPRESSION
     Dosage: 12.5MG PER DAY
     Route: 048
     Dates: start: 20040715
  2. DEPAKOTE [Concomitant]
     Dosage: 500MG UNKNOWN
     Route: 048
     Dates: end: 20040715
  3. SYNTHROID [Concomitant]
     Route: 065
  4. GLUCOSAMINE [Concomitant]
     Route: 048
  5. DIOVAN [Concomitant]
     Indication: HYPERTENSION
     Dates: start: 20040724

REACTIONS (2)
  - HELICOBACTER INFECTION [None]
  - PYREXIA [None]
